FAERS Safety Report 19062972 (Version 1)
Quarter: 2021Q1

REPORT INFORMATION
  Report Type: Spontaneous
  Country: US (occurrence: US)
  Receive Date: 20210326
  Receipt Date: 20210326
  Transmission Date: 20210420
  Serious: No
  Sender: FDA-Public Use
  Company Number: US-ASTRAZENECA-2021A087475

PATIENT
  Age: 30042 Day
  Sex: Female
  Weight: 51.7 kg

DRUGS (5)
  1. AZ AUTHORIZED GENERIC SYMBICORT [Suspect]
     Active Substance: BUDESONIDE\FORMOTEROL FUMARATE DIHYDRATE
     Indication: ASTHMA
     Dosage: 2 PUFF BID
     Route: 055
     Dates: start: 20210121
  2. AZ AUTHORIZED GENERIC  SYMBICORT [Suspect]
     Active Substance: BUDESONIDE\FORMOTEROL FUMARATE DIHYDRATE
     Indication: BRONCHIECTASIS
     Dosage: 2 PUFF BID
     Route: 055
     Dates: start: 20210121
  3. SYMBICORT [Suspect]
     Active Substance: BUDESONIDE\FORMOTEROL FUMARATE DIHYDRATE
     Indication: BRONCHIECTASIS
     Dosage: 2 INHALATIONS BID
     Route: 055
  4. ELIQUIS [Concomitant]
     Active Substance: APIXABAN
  5. SYMBICORT [Suspect]
     Active Substance: BUDESONIDE\FORMOTEROL FUMARATE DIHYDRATE
     Indication: ASTHMA
     Dosage: 2 INHALATIONS BID
     Route: 055

REACTIONS (3)
  - Product dose omission issue [Unknown]
  - Candida infection [Not Recovered/Not Resolved]
  - Wrong technique in product usage process [Unknown]

NARRATIVE: CASE EVENT DATE: 202011
